FAERS Safety Report 24816180 (Version 2)
Quarter: 2025Q3

REPORT INFORMATION
  Report Type: Report from Study
  Country: US (occurrence: US)
  Receive Date: 20250107
  Receipt Date: 20250802
  Transmission Date: 20251020
  Serious: Yes (Hospitalization, Other)
  Sender: ALEXION PHARMACEUTICALS
  Company Number: US-ASTRAZENECA-202412USA026205US

PATIENT
  Sex: Female

DRUGS (2)
  1. STRENSIQ [Suspect]
     Active Substance: ASFOTASE ALFA
     Route: 065
  2. STRENSIQ [Suspect]
     Active Substance: ASFOTASE ALFA
     Route: 065

REACTIONS (16)
  - Nephrolithiasis [Unknown]
  - Urinary retention [Recovered/Resolved]
  - Nausea [Unknown]
  - Vomiting [Unknown]
  - Chills [Unknown]
  - Pain [Unknown]
  - Tremor [Unknown]
  - Dyspnoea [Unknown]
  - Urine oxalate increased [Unknown]
  - Muscular weakness [Unknown]
  - Constipation [Unknown]
  - Diarrhoea [Unknown]
  - Back pain [Unknown]
  - Arthralgia [Unknown]
  - Neck pain [Unknown]
  - Dyspnoea exertional [Unknown]

NARRATIVE: CASE EVENT DATE: 20240301
